FAERS Safety Report 6032929-5 (Version None)
Quarter: 2009Q1

REPORT INFORMATION
  Report Type: 
  Country: None (occurrence: None)
  Receive Date: 20090107
  Receipt Date: 20090107
  Transmission Date: 20090719
  Serious: Yes (Other)
  Sender: FDA-Public Use
  Company Number: None

PATIENT
  Age: 42 Year
  Sex: Male
  Weight: 83.4619 kg

DRUGS (1)
  1. EPINEPHRINE [Suspect]
     Dates: start: 20081219, end: 20081220

REACTIONS (6)
  - DYSARTHRIA [None]
  - EYE DISORDER [None]
  - HEADACHE [None]
  - HYPERTENSION [None]
  - TENSION HEADACHE [None]
  - VISION BLURRED [None]
